FAERS Safety Report 4695632-X (Version None)
Quarter: 2005Q2

REPORT INFORMATION
  Report Type: 
  Country: None (occurrence: None)
  Receive Date: 20050621
  Receipt Date: 20050608
  Transmission Date: 20051028
  Serious: Yes (Disabling, Other)
  Sender: FDA-Public Use
  Company Number: FR-JNJFOC-20050402748

PATIENT
  Sex: Female
  Weight: 70 kg

DRUGS (8)
  1. EPITOMAX [Suspect]
     Route: 049
  2. EPITOMAX [Suspect]
     Indication: MIGRAINE PROPHYLAXIS
     Route: 049
  3. BI-PROFENID [Concomitant]
     Indication: MIGRAINE
  4. PRONTALGINE [Concomitant]
  5. PRONTALGINE [Concomitant]
  6. PRONTALGINE [Concomitant]
  7. PRONTALGINE [Concomitant]
     Indication: MIGRAINE
     Dosage: INITIATED AT THE END OF 2004
  8. ACETAMINOPHEN [Concomitant]
     Indication: MIGRAINE

REACTIONS (4)
  - ARTHRALGIA [None]
  - MUSCULOSKELETAL PAIN [None]
  - OSTEONECROSIS [None]
  - PARAESTHESIA [None]
